FAERS Safety Report 26174774 (Version 1)
Quarter: 2025Q4

REPORT INFORMATION
  Report Type: Spontaneous
  Country: NZ (occurrence: NZ)
  Receive Date: 20251218
  Receipt Date: 20251218
  Transmission Date: 20260118
  Serious: Yes (Hospitalization)
  Sender: MERCK SHARP & DOHME LLC
  Company Number: NZ-009507513-2358767

PATIENT

DRUGS (1)
  1. SUGAMMADEX [Suspect]
     Active Substance: SUGAMMADEX
     Indication: Anaesthesia
     Dosage: ROUTE: UNSPECIFIED

REACTIONS (5)
  - Oedema [Unknown]
  - Drug hypersensitivity [Unknown]
  - Bronchospasm [Unknown]
  - Hypotension [Unknown]
  - Rash [Unknown]
